FAERS Safety Report 9663908 (Version 1)
Quarter: 2013Q4

REPORT INFORMATION
  Report Type: Spontaneous
  Country: US (occurrence: US)
  Receive Date: 20131101
  Receipt Date: 20131101
  Transmission Date: 20140711
  Serious: Yes (Other)
  Sender: FDA-Public Use
  Company Number: CHPA2013US016256

PATIENT
  Age: 34 Year
  Sex: Female

DRUGS (1)
  1. 4 WAY FAST ACTING NASAL SPRAY [Suspect]
     Indication: MULTIPLE ALLERGIES
     Dosage: UNK, UNK
     Route: 045

REACTIONS (2)
  - Dyspnoea [Not Recovered/Not Resolved]
  - Nasal disorder [Not Recovered/Not Resolved]
